FAERS Safety Report 17140190 (Version 1)
Quarter: 2019Q4

REPORT INFORMATION
  Report Type: Report from Study
  Country: JP (occurrence: JP)
  Receive Date: 20191211
  Receipt Date: 20191211
  Transmission Date: 20200122
  Serious: Yes (Other)
  Sender: FDA-Public Use
  Company Number: NVSJ2019JP003725

PATIENT
  Age: 63 Year
  Sex: Female

DRUGS (8)
  1. SIGNIFOR LAR [Suspect]
     Active Substance: PASIREOTIDE
     Indication: PITUITARY-DEPENDENT CUSHING^S SYNDROME
     Dosage: 10 MG
     Route: 030
     Dates: start: 20181107
  2. SIGNIFOR LAR [Suspect]
     Active Substance: PASIREOTIDE
     Dosage: 10 MG
     Route: 030
     Dates: start: 20181205
  3. SIGNIFOR LAR [Suspect]
     Active Substance: PASIREOTIDE
     Dosage: 10 MG
     Route: 030
     Dates: start: 20190109
  4. SIGNIFOR LAR [Suspect]
     Active Substance: PASIREOTIDE
     Dosage: 10 MG
     Route: 030
     Dates: start: 20190403
  5. SIGNIFOR LAR [Suspect]
     Active Substance: PASIREOTIDE
     Dosage: 10 MG
     Route: 030
     Dates: start: 20190501
  6. SIGNIFOR LAR [Suspect]
     Active Substance: PASIREOTIDE
     Dosage: 10 MG
     Route: 030
     Dates: start: 20190306
  7. SIGNIFOR LAR [Suspect]
     Active Substance: PASIREOTIDE
     Dosage: 10 MG
     Route: 030
     Dates: start: 20190206
  8. BROMOCRIPTINE [Concomitant]
     Active Substance: BROMOCRIPTINE
     Indication: PITUITARY-DEPENDENT CUSHING^S SYNDROME
     Dosage: UNK
     Route: 048

REACTIONS (2)
  - Hyperglycaemia [Recovered/Resolved]
  - Hypokalaemia [Unknown]

NARRATIVE: CASE EVENT DATE: 20181107
